FAERS Safety Report 8847794 (Version 2)
Quarter: 2012Q4

REPORT INFORMATION
  Report Type: 
  Country: FR (occurrence: FR)
  Receive Date: 20121018
  Receipt Date: 20121102
  Transmission Date: 20130627
  Serious: Yes (Hospitalization)
  Sender: FDA-Public Use
  Company Number: FR-B.I. PHARMACEUTICALS,INC./RIDGEFIELD-2012-FF-01487FF

PATIENT
  Age: 89 Year
  Sex: Female
  Weight: 48 kg

DRUGS (6)
  1. PRADAXA [Suspect]
     Indication: ATRIAL FIBRILLATION
     Dosage: 220 mg
     Route: 048
     Dates: start: 20120820, end: 20120926
  2. CORDARONE [Concomitant]
     Indication: ATRIAL FIBRILLATION
     Dosage: 200 mg
     Route: 048
     Dates: start: 2002
  3. INEXIUM [Concomitant]
     Indication: PROPHYLAXIS
     Dosage: 20 mg
     Route: 048
     Dates: start: 20120802
  4. APROVEL [Concomitant]
     Indication: HYPERTENSION
     Dosage: 150 mg
     Route: 048
     Dates: start: 20120802
  5. MODOPAR [Concomitant]
     Indication: PARKINSON^S DISEASE
     Dosage: 375 mg
     Route: 048
     Dates: start: 20120802
  6. SEROPLEX [Concomitant]
     Indication: DEPRESSION
     Dosage: 10 mg
     Route: 048
     Dates: start: 20120802

REACTIONS (2)
  - Pulmonary embolism [Recovered/Resolved]
  - General physical health deterioration [Recovered/Resolved]
